FAERS Safety Report 7578867-8 (Version None)
Quarter: 2011Q2

REPORT INFORMATION
  Report Type: 
  Country: None (occurrence: None)
  Receive Date: 20110628
  Receipt Date: 20110622
  Transmission Date: 20111010
  Serious: Yes (Other)
  Sender: FDA-Public Use
  Company Number: US-BAXTER-2011BH020704

PATIENT
  Age: 46 Year
  Sex: Female

DRUGS (4)
  1. METHYLPHENIDATE [Concomitant]
     Indication: CATATONIA
     Route: 065
  2. ESCITALOPRAM [Concomitant]
     Indication: DEPRESSION
     Route: 065
  3. PERPHENAZINE [Concomitant]
     Indication: DEPRESSION
     Route: 065
  4. LORAZEPAM [Suspect]
     Indication: SEDATION
     Route: 065

REACTIONS (2)
  - OVERDOSE [None]
  - RESPIRATORY DISTRESS [None]
